FAERS Safety Report 21401310 (Version 1)
Quarter: 2022Q4

REPORT INFORMATION
  Report Type: Spontaneous
  Country: US (occurrence: US)
  Receive Date: 20221003
  Receipt Date: 20221003
  Transmission Date: 20230113
  Serious: Yes (Death, Other)
  Sender: FDA-Public Use
  Company Number: US-009507513-1303USA009665

PATIENT
  Sex: Female

DRUGS (1)
  1. FOSAMAX [Suspect]
     Active Substance: ALENDRONATE SODIUM
     Dosage: UNK
     Route: 048

REACTIONS (5)
  - Acute respiratory distress syndrome [Fatal]
  - Fat embolism [Fatal]
  - Pulmonary fibrosis [Fatal]
  - Fracture [Fatal]
  - Adverse event [Unknown]
